FAERS Safety Report 6768696-7 (Version None)
Quarter: 2010Q2

REPORT INFORMATION
  Report Type: 
  Country: None (occurrence: None)
  Receive Date: 20100614
  Receipt Date: 20100609
  Transmission Date: 20101027
  Serious: Yes (Death)
  Sender: FDA-Public Use
  Company Number: JP-ELI_LILLY_AND_COMPANY-JP201006002708

PATIENT
  Age: 78 Year

DRUGS (2)
  1. GEMZAR [Suspect]
     Indication: PANCREATIC CARCINOMA RESECTABLE
     Dosage: 200 MG/M2, WEEKLY (1/W)
     Route: 042
  2. TS 1 [Concomitant]
     Indication: PANCREATIC CARCINOMA RESECTABLE
     Dosage: 80 MG/M2, OTHER
     Route: 048

REACTIONS (5)
  - DECREASED APPETITE [None]
  - HEPATIC FAILURE [None]
  - NAUSEA [None]
  - PNEUMONITIS [None]
  - PORTAL VEIN THROMBOSIS [None]
